FAERS Safety Report 12015034 (Version 1)
Quarter: 2016Q1

REPORT INFORMATION
  Report Type: Spontaneous
  Country: US (occurrence: US)
  Receive Date: 20160205
  Receipt Date: 20160205
  Transmission Date: 20160526
  Serious: No
  Sender: FDA-Public Use
  Company Number: US-AMGEN-USASP2015016779

PATIENT
  Sex: Female

DRUGS (6)
  1. ATIVAN [Concomitant]
     Active Substance: LORAZEPAM
     Dosage: UNK
  2. TAXOTERE [Concomitant]
     Active Substance: DOCETAXEL
     Indication: INVASIVE DUCTAL BREAST CARCINOMA
     Dosage: FOUR DOSES, Q3WK
     Dates: start: 20140716
  3. NEULASTA [Suspect]
     Active Substance: PEGFILGRASTIM
     Indication: PRODUCT USED FOR UNKNOWN INDICATION
     Dosage: UNK
     Route: 065
  4. TYLENOL [Concomitant]
     Active Substance: ACETAMINOPHEN
     Dosage: UNK
  5. NARCAN [Concomitant]
     Active Substance: NALOXONE HYDROCHLORIDE
     Dosage: UNK
  6. CYCLOPHOSPHAMIDE. [Concomitant]
     Active Substance: CYCLOPHOSPHAMIDE
     Indication: INVASIVE DUCTAL BREAST CARCINOMA
     Dosage: FOUR DOSES, Q3WK
     Dates: start: 20140716

REACTIONS (10)
  - Eating disorder [Unknown]
  - Feeling abnormal [Unknown]
  - Psychiatric symptom [Unknown]
  - Pain in extremity [Unknown]
  - Headache [Recovered/Resolved]
  - Panic reaction [Unknown]
  - Blood pressure abnormal [Recovered/Resolved]
  - Nausea [Unknown]
  - Constipation [Unknown]
  - Erythema [Unknown]
